FAERS Safety Report 25312648 (Version 2)
Quarter: 2025Q2

REPORT INFORMATION
  Report Type: Spontaneous
  Country: US (occurrence: US)
  Receive Date: 20250514
  Receipt Date: 20250515
  Transmission Date: 20250717
  Serious: No
  Sender: TRAVERE THERAPEUTICS
  Company Number: US-TRAVERE-2025TVT00609

PATIENT
  Age: 38 Year
  Sex: Male

DRUGS (2)
  1. FILSPARI [Suspect]
     Active Substance: SPARSENTAN
     Indication: IgA nephropathy
     Route: 048
     Dates: start: 20250426, end: 20250501
  2. FILSPARI [Suspect]
     Active Substance: SPARSENTAN
     Route: 048

REACTIONS (9)
  - Fatigue [None]
  - Sleep apnoea syndrome [Unknown]
  - Nasopharyngitis [Unknown]
  - Urine abnormality [Recovering/Resolving]
  - Nausea [Unknown]
  - Abdominal discomfort [Unknown]
  - Intentional dose omission [Unknown]
  - Gastroenteritis viral [Unknown]
  - Hypotension [Unknown]
